FAERS Safety Report 5218991-8 (Version None)
Quarter: 2007Q1

REPORT INFORMATION
  Report Type: 
  Country: None (occurrence: None)
  Receive Date: 20070125
  Receipt Date: 20070117
  Transmission Date: 20070707
  Serious: Yes (Hospitalization, Disabling)
  Sender: FDA-Public Use
  Company Number: FR-ROCHE-462676

PATIENT
  Age: 39 Year
  Sex: Female
  Weight: 50 kg

DRUGS (7)
  1. PEGASYS [Suspect]
     Indication: HEPATITIS C
     Dosage: FORM REPORTED AS INJECTABLE SOLUTION.
     Route: 058
     Dates: start: 20040601, end: 20050318
  2. PEGASYS [Suspect]
     Route: 058
     Dates: start: 20050322, end: 20050401
  3. COPEGUS [Suspect]
     Indication: HEPATITIS C
     Route: 048
     Dates: start: 20040601, end: 20050401
  4. TRAMADOL HCL [Concomitant]
     Route: 048
     Dates: start: 20050318, end: 20050401
  5. MYOLASTAN [Concomitant]
     Dosage: DOSAGE REGIMEN REPORTED AS ONE DOSE DAILY.
     Route: 048
     Dates: start: 20050318, end: 20050401
  6. ZOLPIDEM TARTRATE [Concomitant]
     Indication: INSOMNIA
     Dosage: DOSAGE REGIMEN REPORTED AS ONE DOSE.
     Route: 048
     Dates: start: 20041230, end: 20050623
  7. IXEL [Concomitant]
     Indication: DEPRESSION
     Dosage: DOSAGE REGIMEN REPORTED AS : AT A DOSE OF 50. THE DRUG WAS RE-INTRODUCED FROM 24 APRIL 2006 TO 10 A+
     Route: 048
     Dates: start: 20041230, end: 20050623

REACTIONS (6)
  - ASTHENIA [None]
  - DEPRESSION [None]
  - DRUG INTERACTION [None]
  - INSOMNIA [None]
  - PERICARDITIS [None]
  - PHOTOPHOBIA [None]
